FAERS Safety Report 5910153-1 (Version None)
Quarter: 2008Q4

REPORT INFORMATION
  Report Type: 
  Country: None (occurrence: None)
  Receive Date: 20081007
  Receipt Date: 20081002
  Transmission Date: 20090506
  Serious: Yes (Other)
  Sender: FDA-Public Use
  Company Number: FR-BRISTOL-MYERS SQUIBB COMPANY-14356513

PATIENT
  Age: 35 Year
  Sex: Male
  Weight: 65 kg

DRUGS (5)
  1. REYATAZ [Suspect]
     Indication: HIV INFECTION
     Route: 048
     Dates: start: 20080603, end: 20080808
  2. TRUVADA [Suspect]
     Indication: HIV INFECTION
     Dates: start: 20080603, end: 20080808
  3. NORVIR [Suspect]
     Indication: HIV INFECTION
     Dates: start: 20080603, end: 20080808
  4. BACTRIM [Suspect]
     Dates: start: 20080415
  5. FOSINORM [Suspect]
     Dates: start: 20080415

REACTIONS (1)
  - CYTOLYTIC HEPATITIS [None]
